FAERS Safety Report 16048682 (Version 2)
Quarter: 2019Q2

REPORT INFORMATION
  Report Type: Spontaneous
  Country: US (occurrence: US)
  Receive Date: 20190307
  Receipt Date: 20190401
  Transmission Date: 20190711
  Serious: No
  Sender: FDA-Public Use
  Company Number: US-TAKEDA-2019TUS011624

PATIENT
  Sex: Female
  Weight: 110.65 kg

DRUGS (2)
  1. ENTYVIO [Suspect]
     Active Substance: VEDOLIZUMAB
     Indication: CROHN^S DISEASE
     Dosage: 300 MILLIGRAM
     Route: 042
     Dates: start: 2016
  2. XOLAIR [Concomitant]
     Active Substance: OMALIZUMAB
     Indication: ASTHMA
     Dosage: UNK
     Dates: start: 2018

REACTIONS (2)
  - No adverse event [Unknown]
  - Pregnancy [Unknown]

NARRATIVE: CASE EVENT DATE: 2016
